FAERS Safety Report 23327718 (Version 1)
Quarter: 2023Q4

REPORT INFORMATION
  Report Type: Spontaneous
  Country: US (occurrence: US)
  Receive Date: 20231221
  Receipt Date: 20231221
  Transmission Date: 20240110
  Serious: Yes (Hospitalization, Other)
  Sender: FDA-Public Use
  Company Number: US-FreseniusKabi-FK202320664

PATIENT
  Age: 83 Year
  Sex: Male

DRUGS (3)
  1. VALPROIC ACID [Suspect]
     Active Substance: VALPROIC ACID
     Indication: Dementia
     Dosage: Q8
  2. RISPERIDONE [Concomitant]
     Active Substance: RISPERIDONE
     Indication: Dementia
  3. BENZTROPINE [Concomitant]
     Active Substance: BENZTROPINE
     Indication: Dementia

REACTIONS (6)
  - Tremor [Recovering/Resolving]
  - Encephalopathy [Recovering/Resolving]
  - Hyperammonaemia [Recovering/Resolving]
  - Thrombocytopenia [Recovering/Resolving]
  - Fall [Recovering/Resolving]
  - Off label use [Unknown]
